FAERS Safety Report 8237950 (Version 2)
Quarter: 2013Q2

REPORT INFORMATION
  Report Type: Spontaneous
  Country: US (occurrence: US)
  Receive Date: 20111109
  Receipt Date: 20130415
  Transmission Date: 20140414
  Serious: Yes (Hospitalization, Other)
  Sender: FDA-Public Use
  Company Number: US-BAYER-2011-105949

PATIENT
  Age: 31 Year
  Sex: Female

DRUGS (54)
  1. YAZ [Suspect]
     Dosage: UNK
     Dates: start: 2003, end: 2009
  2. YASMIN [Suspect]
     Indication: CONTRACEPTION
     Dosage: UNK
     Dates: start: 2003, end: 2009
  3. YASMIN [Suspect]
     Indication: MENSTRUATION IRREGULAR
  4. FUROSEMIDE [Concomitant]
  5. HYDROCHLOROTHIAZIDE [Concomitant]
  6. NIFEDICAL XL [Concomitant]
  7. NYSTATIN [Concomitant]
  8. FLUCONAZOLE [Concomitant]
  9. POTASSIUM CHLORIDE [Concomitant]
  10. METFORMIN [Concomitant]
     Dosage: UNK
     Dates: start: 20080628
  11. METFORMIN [Concomitant]
     Dosage: UNK
     Dates: start: 20080602
  12. METFORMIN [Concomitant]
     Dosage: UNK
     Dates: start: 20080701
  13. METFORMIN [Concomitant]
     Dosage: UNK
     Dates: start: 20080811
  14. PEPCID [Concomitant]
     Dosage: UNK
     Dates: start: 20080602
  15. PEPCID [Concomitant]
     Dosage: UNK
     Dates: start: 20080701
  16. PEPCID [Concomitant]
     Dosage: UNK
     Dates: start: 20080811
  17. KEPPRA [Concomitant]
     Dosage: UNK
     Dates: start: 20080528
  18. KEPPRA [Concomitant]
     Dosage: UNK
     Dates: start: 20080602
  19. KEPPRA [Concomitant]
     Dosage: UNK
     Dates: start: 20080701
  20. KEPPRA [Concomitant]
     Dosage: UNK
     Dates: start: 20080811
  21. PERCOCET [Concomitant]
     Indication: PAIN
     Dosage: AS NEEDED
  22. NEURO-EZE OINTMENT [Concomitant]
     Dosage: UNK
     Dates: start: 20080602
  23. DARVOCET-N [Concomitant]
     Dosage: UNK
     Dates: start: 20080528
  24. DARVOCET-N [Concomitant]
     Dosage: UNK
     Dates: start: 20080602
  25. DARVOCET-N [Concomitant]
     Dosage: UNK
     Dates: start: 20080701
  26. DECADRON [Concomitant]
     Dosage: UNK
     Dates: start: 20080602
  27. DECADRON [Concomitant]
     Dosage: UNK
     Dates: start: 20080701
  28. DEXAMETHASONE [Concomitant]
  29. PROTONIX [Concomitant]
     Dosage: UNK
     Dates: start: 20080528
  30. PROTONIX [Concomitant]
     Dosage: UNK
     Dates: start: 20080602
  31. PROTONIX [Concomitant]
     Dosage: UNK
     Dates: start: 20080701
  32. PROTONIX [Concomitant]
     Dosage: UNK
     Dates: start: 20080811
  33. LUNESTA [Concomitant]
     Dosage: UNK
     Dates: start: 20080602
  34. LUNESTA [Concomitant]
     Dosage: UNK
     Dates: start: 20080701
  35. ZANTAC [Concomitant]
     Dosage: UNK
     Dates: start: 20080528
  36. ZANTAC [Concomitant]
     Dosage: UNK
     Dates: start: 20080602
  37. ZANTAC [Concomitant]
     Dosage: UNK
     Dates: start: 20080701
  38. ZANTAC [Concomitant]
     Dosage: UNK
     Dates: start: 20080811
  39. TYLENOL #3 [Concomitant]
     Dosage: UNK
     Dates: start: 20080811
  40. ACETAMINOPHEN W/CODEINE [Concomitant]
  41. VALTREX [Concomitant]
     Dosage: UNK
     Dates: start: 20080728
  42. TEMODAR [Concomitant]
     Dosage: UNK
     Dates: start: 20080727
  43. TEMODAR [Concomitant]
     Dosage: UNK
     Dates: start: 20080701
  44. TEMODAR [Concomitant]
  45. TEMODAR [Concomitant]
     Dosage: UNK
     Dates: start: 20080811
  46. LASIX [Concomitant]
  47. CYMBALTA [Concomitant]
  48. VITAMIN K [Concomitant]
  49. CARVEDILOL [Concomitant]
  50. ENDOCET [Concomitant]
  51. ONDANSETRON [Concomitant]
  52. FAMOTIDINE [Concomitant]
  53. ACACIA BERRY [Concomitant]
  54. LEVLEN [Concomitant]
     Indication: CONTRACEPTION

REACTIONS (11)
  - Cholecystitis chronic [None]
  - Pulmonary embolism [None]
  - Deep vein thrombosis [None]
  - Cholelithiasis [None]
  - Pain [None]
  - Injury [None]
  - General physical health deterioration [None]
  - Anxiety [None]
  - Emotional distress [None]
  - Asthenia [None]
  - Abdominal pain [None]
